FAERS Safety Report 6562113-8 (Version None)
Quarter: 2010Q1

REPORT INFORMATION
  Report Type: 
  Country: None (occurrence: None)
  Receive Date: 20100130
  Receipt Date: 20091218
  Transmission Date: 20100710
  Serious: No
  Sender: FDA-Public Use
  Company Number: US-ABBOTT-09P-163-0605883-00

PATIENT
  Sex: Male

DRUGS (4)
  1. HUMIRA [Suspect]
     Indication: PSORIATIC ARTHROPATHY
     Route: 058
     Dates: start: 20090501
  2. MOTRIN [Concomitant]
     Indication: PAIN
     Route: 048
  3. LIDODERM [Concomitant]
     Indication: DRUG USE FOR UNKNOWN INDICATION
     Dosage: PATCH
     Route: 062
  4. NABUMETONE [Concomitant]
     Indication: PSORIATIC ARTHROPATHY

REACTIONS (1)
  - INJECTION SITE PAIN [None]
